FAERS Safety Report 13021239 (Version 1)
Quarter: 2016Q4

REPORT INFORMATION
  Report Type: Spontaneous
  Country: FR (occurrence: FR)
  Receive Date: 20161213
  Receipt Date: 20161213
  Transmission Date: 20170207
  Serious: Yes (Life-Threatening, Hospitalization, Other)
  Sender: FDA-Public Use
  Company Number: FR-BAXTER-2016BAX061235

PATIENT
  Age: 72 Year
  Sex: Female
  Weight: 74 kg

DRUGS (3)
  1. TAXOTERE [Suspect]
     Active Substance: DOCETAXEL
     Indication: INVASIVE DUCTAL BREAST CARCINOMA
     Route: 065
     Dates: start: 2005
  2. EPIRUBICINE [Suspect]
     Active Substance: EPIRUBICIN
     Indication: INVASIVE DUCTAL BREAST CARCINOMA
     Route: 065
     Dates: start: 2005
  3. ENDOXAN 1000 MG, POUDRE POUR SOLUTION INJECTABLE [Suspect]
     Active Substance: CYCLOPHOSPHAMIDE
     Indication: INVASIVE DUCTAL BREAST CARCINOMA
     Route: 065
     Dates: start: 2005

REACTIONS (8)
  - Inflammation [Unknown]
  - Pulmonary veno-occlusive disease [Not Recovered/Not Resolved]
  - Splenic artery aneurysm [Unknown]
  - Arteriosclerosis coronary artery [Unknown]
  - Chronic kidney disease [Unknown]
  - Vascular calcification [Unknown]
  - Glomerulonephropathy [Unknown]
  - Pulmonary arterial hypertension [Not Recovered/Not Resolved]

NARRATIVE: CASE EVENT DATE: 2015
